FAERS Safety Report 17271065 (Version 1)
Quarter: 2020Q1

REPORT INFORMATION
  Report Type: Spontaneous
  Country: RO (occurrence: RO)
  Receive Date: 20200115
  Receipt Date: 20200115
  Transmission Date: 20200409
  Serious: Yes (Other)
  Sender: FDA-Public Use
  Company Number: RO-AMGEN-ROUSP2020003872

PATIENT
  Age: 64 Year
  Sex: Male

DRUGS (1)
  1. PANITUMUMAB [Suspect]
     Active Substance: PANITUMUMAB
     Indication: COLORECTAL CANCER STAGE IV
     Dosage: UNK
     Route: 065

REACTIONS (9)
  - Staphylococcal infection [Unknown]
  - Xerosis [Unknown]
  - Photosensitivity reaction [Unknown]
  - Pruritus [Unknown]
  - Rash pustular [Unknown]
  - Trichomegaly [Unknown]
  - Paronychia [Unknown]
  - Rash [Unknown]
  - Skin wrinkling [Unknown]
